FAERS Safety Report 4333469-1 (Version None)
Quarter: 2004Q2

REPORT INFORMATION
  Report Type: 
  Country: None (occurrence: None)
  Receive Date: 20040401
  Receipt Date: 20040322
  Transmission Date: 20050107
  Serious: Yes (Other)
  Sender: FDA-Public Use
  Company Number: HQWYE030523MAR04

PATIENT
  Age: 54 Year
  Sex: Male
  Weight: 80 kg

DRUGS (14)
  1. CORDARONE [Suspect]
     Indication: ATRIAL FIBRILLATION
     Dosage: SEE IMAGE
     Route: 042
     Dates: start: 20040318, end: 20040301
  2. CORDARONE [Suspect]
     Indication: ATRIAL FIBRILLATION
     Dosage: SEE IMAGE
     Route: 042
     Dates: start: 20040301
  3. LASIX [Concomitant]
  4. METOCLOPRAMIDE [Concomitant]
  5. HEPARIN [Concomitant]
  6. MIDAZOLAM HCL [Concomitant]
  7. CISATRACURIUM (CISATRACURIUM) [Concomitant]
  8. MILRINONE (MILRINONE) [Concomitant]
  9. FENOLDOPAM (FENOLDOPAM) [Concomitant]
  10. EPINEPHRINE [Concomitant]
  11. PEPCID [Concomitant]
  12. FENTANYL [Concomitant]
  13. ZOSYN [Concomitant]
  14. VANCOMYCIN [Concomitant]

REACTIONS (1)
  - BLOOD BILIRUBIN INCREASED [None]
